FAERS Safety Report 22321704 (Version 1)
Quarter: 2023Q2

REPORT INFORMATION
  Report Type: Spontaneous
  Country: DE (occurrence: DE)
  Receive Date: 20230515
  Receipt Date: 20230515
  Transmission Date: 20230722
  Serious: Yes (Life-Threatening, Hospitalization)
  Sender: FDA-Public Use
  Company Number: DE-JNJFOC-20230532995

PATIENT
  Age: 34 Year
  Sex: Male

DRUGS (1)
  1. SEMPERA [Suspect]
     Active Substance: ITRACONAZOLE
     Indication: Onychomycosis
     Route: 065

REACTIONS (3)
  - Acute hepatic failure [Unknown]
  - Accidental overdose [Unknown]
  - Product prescribing error [Unknown]
